FAERS Safety Report 19325862 (Version 3)
Quarter: 2021Q2

REPORT INFORMATION
  Report Type: Report from Study
  Country: US (occurrence: US)
  Receive Date: 20210528
  Receipt Date: 20210619
  Transmission Date: 20210717
  Serious: No
  Sender: FDA-Public Use
  Company Number: NVSC2021US113713

PATIENT
  Sex: Male

DRUGS (1)
  1. ENTRESTO [Suspect]
     Active Substance: SACUBITRIL\VALSARTAN
     Indication: PRODUCT USED FOR UNKNOWN INDICATION
     Dosage: 24.26 MG, BID
     Route: 048

REACTIONS (5)
  - Foreign body in eye [Unknown]
  - Weight decreased [Unknown]
  - Product dose omission issue [Unknown]
  - Blood pressure increased [Unknown]
  - Dizziness [Unknown]
